FAERS Safety Report 4752816-X (Version None)
Quarter: 2005Q3

REPORT INFORMATION
  Report Type: 
  Country: None (occurrence: None)
  Receive Date: 20050823
  Receipt Date: 20041206
  Transmission Date: 20060218
  Serious: Yes (Other)
  Sender: FDA-Public Use
  Company Number: 2004083552

PATIENT
  Age: 65 Year
  Sex: Male

DRUGS (2)
  1. NORVASC [Suspect]
     Indication: ILL-DEFINED DISORDER
     Dosage: UNKNOWN (5 MG, UNKNOWN)
     Route: 065
     Dates: start: 20040601
  2. OLMESARTAN MEDOXOMIL (OLMESARTAN MEDOXOMIL) [Suspect]
     Indication: ILL-DEFINED DISORDER
     Dosage: UNKNOWN
     Route: 064
     Dates: start: 20040601, end: 20040101

REACTIONS (2)
  - ANGIONEUROTIC OEDEMA [None]
  - UNEVALUABLE EVENT [None]
